FAERS Safety Report 6677930-3 (Version None)
Quarter: 2010Q2

REPORT INFORMATION
  Report Type: 
  Country: None (occurrence: None)
  Receive Date: 20100412
  Receipt Date: 20100409
  Transmission Date: 20101027
  Serious: Yes (Death, Hospitalization)
  Sender: FDA-Public Use
  Company Number: GB-WYE-G05933910

PATIENT
  Sex: Female

DRUGS (2)
  1. GEMTUZUMAB OZOGAMICIN [Suspect]
     Indication: ACUTE MYELOID LEUKAEMIA
     Dosage: UNKNOWN
     Dates: start: 20100315, end: 20100325
  2. ARA-C [Suspect]
     Indication: ACUTE MYELOID LEUKAEMIA
     Dosage: UNKNOWN
     Dates: start: 20100315, end: 20100325

REACTIONS (7)
  - CHEST PAIN [None]
  - DEATH [None]
  - DIARRHOEA [None]
  - DYSPNOEA [None]
  - PALLOR [None]
  - PYREXIA [None]
  - URINE OUTPUT DECREASED [None]
